FAERS Safety Report 4603992-0 (Version None)
Quarter: 2005Q1

REPORT INFORMATION
  Report Type: 
  Country: None (occurrence: None)
  Receive Date: 20050310
  Receipt Date: 20050224
  Transmission Date: 20050727
  Serious: Yes (Other)
  Sender: FDA-Public Use
  Company Number: US-GLAXOSMITHKLINE-A0548042A

PATIENT
  Sex: Male

DRUGS (1)
  1. NICORETTE [Suspect]
     Route: 002

REACTIONS (2)
  - HALLUCINATION [None]
  - INTENTIONAL MISUSE [None]
